FAERS Safety Report 12763413 (Version 1)
Quarter: 2016Q3

REPORT INFORMATION
  Report Type: Spontaneous
  Country: BR (occurrence: BR)
  Receive Date: 20160920
  Receipt Date: 20160920
  Transmission Date: 20161109
  Serious: Yes (Other)
  Sender: FDA-Public Use
  Company Number: BR-JNJFOC-20160920227

PATIENT
  Age: 75 Year

DRUGS (8)
  1. TEMOZOLOMIDE. [Concomitant]
     Active Substance: TEMOZOLOMIDE
     Indication: MALIGNANT NERVOUS SYSTEM NEOPLASM
     Route: 065
  2. DEXAMETHASONE. [Concomitant]
     Active Substance: DEXAMETHASONE
     Route: 065
  3. XARELTO [Suspect]
     Active Substance: RIVAROXABAN
     Indication: PRODUCT USED FOR UNKNOWN INDICATION
     Route: 048
  4. ESCITALOPRAM [Concomitant]
     Active Substance: ESCITALOPRAM OXALATE
     Route: 065
  5. AAS [Concomitant]
     Active Substance: ASPIRIN
     Route: 065
  6. ARA [Concomitant]
     Active Substance: DEXTRAN 70\GLYCERIN\HYPROMELLOSES
     Route: 065
  7. GLIFAGE [Concomitant]
     Active Substance: METFORMIN HYDROCHLORIDE
     Route: 048
  8. VALPROIC ACID. [Concomitant]
     Active Substance: VALPROIC ACID

REACTIONS (3)
  - Rash papular [Recovered/Resolved]
  - Oedema peripheral [Recovered/Resolved]
  - Pain in extremity [Recovered/Resolved]
